FAERS Safety Report 16543114 (Version 1)
Quarter: 2019Q3

REPORT INFORMATION
  Report Type: Spontaneous
  Country: JP (occurrence: JP)
  Receive Date: 20190709
  Receipt Date: 20190709
  Transmission Date: 20191004
  Serious: Yes (Death, Other)
  Sender: FDA-Public Use
  Company Number: JP-ASTELLAS-2019JP013641

PATIENT
  Age: 8 Decade
  Sex: Male

DRUGS (1)
  1. FUNGUARD [Suspect]
     Active Substance: MICAFUNGIN SODIUM
     Indication: BRONCHOPULMONARY ASPERGILLOSIS
     Dosage: UNK UNK, UNKNOWN FREQ.
     Route: 042

REACTIONS (3)
  - Cardiac disorder [Fatal]
  - Hepatic congestion [Fatal]
  - Liver disorder [Not Recovered/Not Resolved]
